FAERS Safety Report 10798329 (Version 1)
Quarter: 2015Q1

REPORT INFORMATION
  Report Type: Report from Study
  Country: US (occurrence: US)
  Receive Date: 20150216
  Receipt Date: 20150216
  Transmission Date: 20150721
  Serious: Yes (Other)
  Sender: FDA-Public Use
  Company Number: PHEH2015US002613

PATIENT
  Sex: Female

DRUGS (1)
  1. GILENYA [Suspect]
     Active Substance: FINGOLIMOD HYDROCHLORIDE
     Indication: MULTIPLE SCLEROSIS
     Dosage: 0.5 MG, QD
     Route: 048
     Dates: start: 20141010

REACTIONS (12)
  - Motor dysfunction [Unknown]
  - Gait spastic [Unknown]
  - Muscle spasticity [Unknown]
  - Nasopharyngitis [Unknown]
  - Hip fracture [Unknown]
  - Musculoskeletal stiffness [Unknown]
  - Ataxia [Unknown]
  - Cough [Unknown]
  - Muscular weakness [Unknown]
  - Cognitive disorder [Unknown]
  - Dizziness [Unknown]
  - Peroneal nerve palsy [Unknown]
